FAERS Safety Report 5834834-3 (Version None)
Quarter: 2008Q3

REPORT INFORMATION
  Report Type: 
  Country: None (occurrence: None)
  Receive Date: 20080805
  Receipt Date: 20080725
  Transmission Date: 20090109
  Serious: Yes (Hospitalization)
  Sender: FDA-Public Use
  Company Number: US-ELI_LILLY_AND_COMPANY-US200807005370

PATIENT
  Sex: Female
  Weight: 99.773 kg

DRUGS (17)
  1. BYETTA [Suspect]
     Indication: TYPE 2 DIABETES MELLITUS
     Dosage: 5 UG, 2/D
     Route: 058
     Dates: start: 20070501
  2. LASIX [Concomitant]
     Indication: CARDIAC FAILURE CONGESTIVE
     Dosage: 160 MG, DAILY (1/D)
  3. IMDUR [Concomitant]
     Indication: CARDIAC DISORDER
     Dosage: 60 MG, EACH MORNING
  4. IMDUR [Concomitant]
     Dosage: 60 MG, EACH EVENING
  5. K-DUR [Concomitant]
     Indication: CARDIAC DISORDER
     Dosage: 40 MG, EACH MORNING
  6. K-DUR [Concomitant]
     Dosage: 40 MG, EACH EVENING
  7. LANOXIN [Concomitant]
     Indication: CARDIAC DISORDER
     Dosage: 0.125 MG, EACH MORNING
  8. NEXIUM [Concomitant]
     Indication: GASTRIC DISORDER
     Dosage: 40 MG, DAILY (1/D)
  9. AMIODARONE HCL [Concomitant]
     Dosage: UNK, EACH MORNING
  10. DARVOCET [Concomitant]
     Indication: ARTHRITIS
     Dosage: 650 MG, AS NEEDED
  11. TRANXENE [Concomitant]
     Indication: BLOOD PRESSURE
     Dosage: 3.75 MG, EACH EVENING
  12. ASPIRIN [Concomitant]
     Indication: CARDIAC DISORDER
     Dosage: 81 MG, UNKNOWN
  13. LANTUS [Concomitant]
     Indication: TYPE 2 DIABETES MELLITUS
     Dosage: 60 U, EACH EVENING
  14. IBUPROFEN TABLETS [Concomitant]
     Indication: PAIN
     Dosage: UNK, AS NEEDED
  15. MULTI-VITAMIN [Concomitant]
     Dosage: UNK, UNKNOWN
  16. BENICAR [Concomitant]
     Dosage: 20 MG, DAILY (1/D)
  17. VICODIN [Concomitant]
     Indication: PAIN
     Dosage: UNK, AS NEEDED

REACTIONS (4)
  - BLOOD PRESSURE INCREASED [None]
  - DECREASED APPETITE [None]
  - POST PROCEDURAL INFECTION [None]
  - WEIGHT DECREASED [None]
